FAERS Safety Report 6921495-5 (Version None)
Quarter: 2010Q3

REPORT INFORMATION
  Report Type: 
  Country: None (occurrence: None)
  Receive Date: 20100812
  Receipt Date: 20100804
  Transmission Date: 20110219
  Serious: Yes (Hospitalization)
  Sender: FDA-Public Use
  Company Number: PHHO2010CO09259

PATIENT
  Sex: Male
  Weight: 74 kg

DRUGS (7)
  1. CERTICAN [Suspect]
     Indication: RENAL TRANSPLANT
     Dosage: UNK
     Route: 048
     Dates: start: 20100406
  2. CERTICAN [Suspect]
     Dosage: 6 MG
     Route: 048
     Dates: start: 20100428, end: 20100601
  3. CERTICAN [Suspect]
     Dosage: 4 MG
     Route: 048
     Dates: start: 20100603, end: 20100611
  4. CERTICAN [Suspect]
     Dosage: 1 MG
     Route: 048
     Dates: start: 20100613, end: 20100615
  5. CERTICAN [Suspect]
     Dosage: 1.25MG/DAY
     Route: 048
  6. CERTICAN [Suspect]
     Dosage: 1.5MG/DAY
     Route: 048
  7. AEB071 AEB+GELCAP [Suspect]
     Indication: RENAL TRANSPLANT
     Dosage: 400 MG, ONCE/SINGLE
     Route: 048
     Dates: start: 20100406

REACTIONS (1)
  - DRUG TOXICITY [None]
